FAERS Safety Report 11205675 (Version 1)
Quarter: 2015Q2

REPORT INFORMATION
  Report Type: Spontaneous
  Country: JP (occurrence: JP)
  Receive Date: 20150622
  Receipt Date: 20150622
  Transmission Date: 20150821
  Serious: Yes (Other)
  Sender: FDA-Public Use
  Company Number: JP-PFIZER INC-2015201995

PATIENT
  Age: 77 Year
  Sex: Male

DRUGS (1)
  1. INLYTA [Suspect]
     Active Substance: AXITINIB
     Indication: RENAL CANCER
     Dosage: UNK
     Route: 048
     Dates: start: 201404, end: 201505

REACTIONS (4)
  - Enteritis infectious [Recovered/Resolved]
  - Oesophagitis [Recovering/Resolving]
  - Disease progression [Unknown]
  - Renal cancer [Unknown]

NARRATIVE: CASE EVENT DATE: 201504
